FAERS Safety Report 6426449-3 (Version None)
Quarter: 2009Q4

REPORT INFORMATION
  Report Type: 
  Country: None (occurrence: None)
  Receive Date: 20091104
  Receipt Date: 20091027
  Transmission Date: 20100525
  Serious: Yes (Other)
  Sender: FDA-Public Use
  Company Number: PHEH2009US13483

PATIENT
  Sex: Female
  Weight: 79.819 kg

DRUGS (5)
  1. EXJADE [Suspect]
     Indication: MYELODYSPLASTIC SYNDROME
     Dosage: 500 MG, TID
     Route: 048
     Dates: start: 20071114
  2. EXJADE [Suspect]
     Dosage: 500 MG, TID
     Dates: start: 20090217, end: 20090818
  3. POTASSIUM CHLORIDE [Concomitant]
     Dosage: 10 MEQ, QD
     Route: 048
  4. TENORETIC 100 [Concomitant]
     Dosage: 50/25 QD
     Route: 048
  5. ASPIRIN [Concomitant]
     Dosage: 81 MG, QD
     Route: 048

REACTIONS (5)
  - CATARACT [None]
  - CORNEAL OEDEMA [None]
  - STAPHYLOCOCCAL INFECTION [None]
  - VISION BLURRED [None]
  - VISUAL IMPAIRMENT [None]
